FAERS Safety Report 15462917 (Version 3)
Quarter: 2019Q1

REPORT INFORMATION
  Report Type: Spontaneous
  Country: US (occurrence: US)
  Receive Date: 20181004
  Receipt Date: 20190304
  Transmission Date: 20190417
  Serious: No
  Sender: FDA-Public Use
  Company Number: US-PFIZER INC-2018390360

PATIENT
  Age: 54 Year
  Sex: Female
  Weight: 106.5 kg

DRUGS (5)
  1. VFEND [Suspect]
     Active Substance: VORICONAZOLE
     Indication: LYMPHOMA
  2. GABAPENTIN. [Concomitant]
     Active Substance: GABAPENTIN
     Dosage: UNK
     Dates: start: 20190101
  3. GABAPENTIN. [Concomitant]
     Active Substance: GABAPENTIN
     Indication: NEUROPATHY PERIPHERAL
     Dosage: 400 MG, UNK
     Route: 048
     Dates: start: 20180222
  4. VFEND [Suspect]
     Active Substance: VORICONAZOLE
     Indication: CELLULITIS
     Dosage: 300 MG, 2X/DAY
     Route: 048
  5. VFEND [Suspect]
     Active Substance: VORICONAZOLE
     Indication: GRAFT VERSUS HOST DISEASE
     Dosage: 200 MG, 2X/DAY (ONE TABLET EVERY 12 HOURS)
     Route: 048
     Dates: start: 20180714

REACTIONS (2)
  - Blister [Unknown]
  - Skin discolouration [Recovering/Resolving]

NARRATIVE: CASE EVENT DATE: 201809
